FAERS Safety Report 9945678 (Version 1)
Quarter: 2014Q1

REPORT INFORMATION
  Report Type: Report from Study
  Country: US (occurrence: US)
  Receive Date: 20140303
  Receipt Date: 20140303
  Transmission Date: 20141002
  Serious: Yes (Other)
  Sender: FDA-Public Use
  Company Number: US-ABBVIE-13P-163-1051012-00

PATIENT
  Age: 57 Year
  Sex: Female

DRUGS (17)
  1. HUMIRA [Suspect]
     Indication: PSORIATIC ARTHROPATHY
  2. PROTONICS [Concomitant]
     Indication: GASTROOESOPHAGEAL REFLUX DISEASE
  3. AMLOD/BENAZP [Concomitant]
     Indication: BLOOD PRESSURE
     Dosage: 10/20 MG DAILY
  4. HITRIM (SP) [Concomitant]
     Indication: HYPERHIDROSIS
  5. METHOTREXATE [Concomitant]
     Indication: PRODUCT USED FOR UNKNOWN INDICATION
     Dosage: 10 PILLS EVERY WEEK
  6. NUVIGIL [Concomitant]
     Indication: SOMNOLENCE
  7. FOLIC ACID [Concomitant]
     Indication: PRODUCT USED FOR UNKNOWN INDICATION
  8. VITAMIN D [Concomitant]
     Indication: PRODUCT USED FOR UNKNOWN INDICATION
  9. MAGNESIUM [Concomitant]
     Indication: PRODUCT USED FOR UNKNOWN INDICATION
  10. NUCYNTA [Concomitant]
     Indication: PAIN
  11. OPANA ER [Concomitant]
     Indication: PAIN
  12. KLONOPIN [Concomitant]
     Indication: ANXIETY
  13. KLONOPIN [Concomitant]
     Indication: TREMOR
  14. HYDROCORTISONE [Concomitant]
     Indication: PRURITUS
  15. COMPAZINE [Concomitant]
     Indication: NAUSEA
  16. BUMETANIDE [Concomitant]
     Indication: LOCAL SWELLING
     Dosage: TAKEN WITH IBUPROFEN
  17. IBUPROFEN [Concomitant]
     Indication: LOCAL SWELLING
     Dosage: TAKEN WITH BUMETANIDE

REACTIONS (8)
  - Fall [Not Recovered/Not Resolved]
  - Thoracic vertebral fracture [Unknown]
  - Rib fracture [Unknown]
  - Bedridden [Unknown]
  - Arthritis [Unknown]
  - Depression [Unknown]
  - Respiratory tract infection [Unknown]
  - Colitis [Unknown]
